FAERS Safety Report 4353405-1 (Version None)
Quarter: 2004Q2

REPORT INFORMATION
  Report Type: 
  Country: None (occurrence: None)
  Receive Date: 20040504
  Receipt Date: 20040421
  Transmission Date: 20050107
  Serious: Yes (Hospitalization)
  Sender: FDA-Public Use
  Company Number: 2004027406

PATIENT
  Age: 39 Year
  Sex: Male
  Weight: 92.5338 kg

DRUGS (9)
  1. SUDAFED 12 HOUR [Suspect]
     Indication: FATIGUE
     Dosage: 4-6 THEN 10-12 TABLETS AT ONCE DAILY, ORAL
     Route: 048
     Dates: start: 19980101
  2. CAFFEINE (CAFFEINE) [Suspect]
     Indication: FATIGUE
     Dosage: 10-12 CUPS A DAY, ORAL
     Route: 048
     Dates: start: 19980101
  3. ATENOLOL [Concomitant]
  4. MODAFINIL [Concomitant]
  5. ROSUVASTATIN (ROSUVASTATIN) [Concomitant]
  6. NICOTINIC ACID [Concomitant]
  7. ACETYLSALICYLIC ACID SRT [Concomitant]
  8. FEXOFENADINE HYDROCHLORIDE [Concomitant]
  9. VENLAFAXINE HCL [Concomitant]

REACTIONS (1)
  - MYOCARDIAL INFARCTION [None]
